FAERS Safety Report 9713745 (Version 1)
Quarter: 2013Q4

REPORT INFORMATION
  Report Type: Report from Study
  Country: NL (occurrence: NL)
  Receive Date: 20131126
  Receipt Date: 20131126
  Transmission Date: 20140711
  Serious: Yes (Death, Hospitalization)
  Sender: FDA-Public Use
  Company Number: NL-MYLANLABS-2013S1026196

PATIENT
  Sex: Female

DRUGS (5)
  1. DABIGATRAN ETEXILATE [Suspect]
     Indication: PROPHYLAXIS
     Dosage: 150MG DAILY
     Route: 065
  2. PANTOPRAZOLE [Suspect]
     Route: 065
  3. DICLOFENAC [Suspect]
     Route: 065
  4. SIMVASTATIN [Concomitant]
     Route: 065
  5. FERROUS FUMARATE [Concomitant]
     Route: 065

REACTIONS (3)
  - Thrombocytopenia [Not Recovered/Not Resolved]
  - Cerebral infarction [Fatal]
  - Haemorrhagic transformation stroke [Fatal]
